FAERS Safety Report 7990207 (Version 2)
Quarter: 2012Q4

REPORT INFORMATION
  Report Type: 
  Country: US (occurrence: None)
  Receive Date: 20110519
  Receipt Date: 20121022
  Transmission Date: 20130627
  Serious: Yes (Other)
  Sender: FDA-Public Use
  Company Number: 2011028372

PATIENT
  Age: 68 Year
  Sex: Female
  Weight: 59.88 kg

DRUGS (31)
  1. HIZENTRA [Suspect]
     Indication: IMMUNODEFICIENCY COMMON VARIABLE
     Dosage: (5 G 1X/WEEK, 25 ML OVER 1 HOUR 34 MINUTES 20 % CONCENTRATION SUBCUTANEOUS), (SUBCUTANEOUS)
     Route: 058
     Dates: start: 20110302
  2. HIZENTRA [Suspect]
     Indication: IMMUNODEFICIENCY COMMON VARIABLE
     Dosage: 1x/ week
     Route: 058
  3. HIZENTRA [Suspect]
     Indication: IMMUNODEFICIENCY COMMON VARIABLE
     Dosage: 25 ml; 2 sites over 1 hour and 34 minutes
     Route: 058
     Dates: start: 2012
  4. HIZENTRA [Suspect]
     Indication: IMMUNODEFICIENCY COMMON VARIABLE
     Dosage: 25 ml; 2 sites over 1 hour and 34 minutes
     Route: 058
     Dates: start: 2012
  5. ZYRTEC [Concomitant]
  6. NEXIUM [Concomitant]
  7. LEXAPRO [Concomitant]
  8. LORAZEPAM [Concomitant]
  9. LOMOTIL [Concomitant]
  10. NABUMETONE [Concomitant]
  11. DONNATAL [Concomitant]
  12. ACETAMINOPHEN [Concomitant]
  13. OSCAL [Concomitant]
  14. MULTIVITAMIN (ACCOMIN MULTIVITAMIN) [Concomitant]
  15. GLUCOSAMINE (GLUCOSAMINE) [Concomitant]
  16. GARLIC (ALLIUM SATIVUM) [Concomitant]
  17. POTASSIUM (POTASSIUM) [Concomitant]
  18. VITAMIN B12 [Concomitant]
  19. DICYCLOMINE HYDROCHLORIDE [Concomitant]
  20. VERAMYST (FLUTICASONE) [Concomitant]
  21. ALOE VERA (ALOE VERA) [Concomitant]
  22. VITAMIN D [Concomitant]
  23. TUMS (CALCIUM CARBONATE) [Concomitant]
  24. CARAFATE [Concomitant]
  25. BONE DENSITY CALCIUM WITH D (CALCIUM WITH VITAMIN D) [Concomitant]
  26. DIPHENHYDRAMINE (DIPHENHYDRAMINE) [Concomitant]
  27. EPI-PEN (EPINEPHRINE HYDROCHLORIDE) [Concomitant]
  28. LMX (LIDOCAINE) [Concomitant]
  29. TYLENOL PM (DOZOL /00435101/) [Concomitant]
  30. CYMBALTA (DULOXETINE HYDROCHLORIDE) [Concomitant]
  31. PRED FORTE EYE DROPS (PRENISOLONE ACETATE) [Concomitant]

REACTIONS (3)
  - Respiratory tract infection [None]
  - Malaise [None]
  - Abdominal pain upper [None]
